FAERS Safety Report 10144111 (Version 2)
Quarter: 2014Q2

REPORT INFORMATION
  Report Type: Spontaneous
  Country: JP (occurrence: JP)
  Receive Date: 20140430
  Receipt Date: 20140522
  Transmission Date: 20141212
  Serious: Yes (Hospitalization)
  Sender: FDA-Public Use
  Company Number: JP-ASTRAZENECA-2014SE29224

PATIENT
  Age: 80 Year
  Sex: Male

DRUGS (7)
  1. SEROQUEL [Suspect]
     Indication: PRODUCT USED FOR UNKNOWN INDICATION
     Route: 048
  2. SEROQUEL [Suspect]
     Indication: PRODUCT USED FOR UNKNOWN INDICATION
     Route: 048
     Dates: start: 2013
  3. CELECOX [Concomitant]
     Route: 048
  4. ATORVASTATIN [Concomitant]
     Route: 065
  5. DONEPEZIL [Concomitant]
     Route: 065
  6. HYDERGINE [Concomitant]
     Route: 065
  7. MEMARY [Concomitant]
     Route: 065

REACTIONS (2)
  - Fracture [Recovering/Resolving]
  - Somnolence [Unknown]
